FAERS Safety Report 17010845 (Version 1)
Quarter: 2019Q4

REPORT INFORMATION
  Report Type: Spontaneous
  Country: US (occurrence: US)
  Receive Date: 20191108
  Receipt Date: 20191108
  Transmission Date: 20200122
  Serious: Yes (Other)
  Sender: FDA-Public Use
  Company Number: US-TEVA-2019-US-1133834

PATIENT
  Age: 71 Year
  Sex: Male
  Weight: 108.86 kg

DRUGS (1)
  1. PREGABALIN TEVA [Suspect]
     Active Substance: PREGABALIN
     Indication: DIABETIC NEUROPATHY
     Dosage: 450 MILLIGRAM DAILY;
     Route: 065
     Dates: start: 20191021

REACTIONS (8)
  - Depression [Not Recovered/Not Resolved]
  - Visual impairment [Unknown]
  - Nightmare [Not Recovered/Not Resolved]
  - Product substitution issue [Unknown]
  - Product dispensing error [Unknown]
  - Anxiety [Not Recovered/Not Resolved]
  - Suicidal ideation [Not Recovered/Not Resolved]
  - Drug ineffective [Unknown]

NARRATIVE: CASE EVENT DATE: 201910
